FAERS Safety Report 14524411 (Version 1)
Quarter: 2018Q1

REPORT INFORMATION
  Report Type: Spontaneous
  Country: FR (occurrence: FR)
  Receive Date: 20180213
  Receipt Date: 20180213
  Transmission Date: 20180509
  Serious: Yes (Other)
  Sender: FDA-Public Use
  Company Number: FR-MERCK KGAA-2041849

PATIENT
  Age: 37 Year
  Sex: Female
  Weight: 51 kg

DRUGS (5)
  1. LEVOTHYROXINE SODIUM. [Suspect]
     Active Substance: LEVOTHYROXINE SODIUM
     Route: 048
     Dates: start: 20170510, end: 20170630
  2. EUTHYROX 25 [Concomitant]
     Route: 048
     Dates: end: 20170916
  3. EUTHYROX 100 [Concomitant]
     Route: 048
     Dates: start: 20170916
  4. LEVOTHYROXINE SODIUM. [Suspect]
     Active Substance: LEVOTHYROXINE SODIUM
     Route: 048
     Dates: end: 20170630
  5. NOVOTHYROX [Suspect]
     Active Substance: LEVOTHYROXINE SODIUM
     Indication: HYPOTHYROIDISM
     Route: 048
     Dates: end: 20170830

REACTIONS (27)
  - Vertigo [Recovered/Resolved]
  - Asthenia [Recovered/Resolved]
  - Anxiety [Recovered/Resolved]
  - Weight decreased [Recovered/Resolved]
  - Tooth disorder [Recovered/Resolved]
  - Blood thyroid stimulating hormone [Recovered/Resolved]
  - Decreased appetite [Recovered/Resolved]
  - Hypotension [Recovered/Resolved]
  - Insomnia [Recovered/Resolved]
  - Hyperhidrosis [Recovered/Resolved]
  - Alopecia [Recovered/Resolved]
  - Disturbance in attention [Recovered/Resolved]
  - Palpitations [Recovered/Resolved]
  - Dyspnoea [Recovered/Resolved]
  - Irritability [Recovered/Resolved]
  - Suicidal ideation [Recovered/Resolved]
  - Malaise [Recovered/Resolved]
  - Headache [Recovered/Resolved]
  - Myalgia [Recovered/Resolved]
  - Amnesia [Recovered/Resolved]
  - Visual acuity reduced [Recovered/Resolved]
  - Hot flush [Recovered/Resolved]
  - Balance disorder [Recovered/Resolved]
  - Eczema [Recovered/Resolved]
  - Menorrhagia [Recovered/Resolved]
  - Depression [Recovered/Resolved]
  - Muscle spasms [Recovered/Resolved]

NARRATIVE: CASE EVENT DATE: 20170517
